FAERS Safety Report 15702017 (Version 1)
Quarter: 2018Q4

REPORT INFORMATION
  Report Type: Spontaneous
  Country: US (occurrence: US)
  Receive Date: 20181207
  Receipt Date: 20181207
  Transmission Date: 20190205
  Serious: Yes (Other)
  Sender: FDA-Public Use
  Company Number: None

PATIENT
  Age: 62 Year
  Sex: Female
  Weight: 87.75 kg

DRUGS (1)
  1. TERBINAFINE 250 MG. TABLETS, NDC:  65862-079-30 [Suspect]
     Active Substance: TERBINAFINE HYDROCHLORIDE
     Indication: FUNGAL SKIN INFECTION
     Dosage: ?          QUANTITY:30 TABLET(S);?
     Route: 048
     Dates: start: 20180715, end: 20180722

REACTIONS (2)
  - Sweat discolouration [None]
  - Product substitution issue [None]

NARRATIVE: CASE EVENT DATE: 20180720
